FAERS Safety Report 9032573 (Version 1)
Quarter: 2013Q1

REPORT INFORMATION
  Report Type: Spontaneous
  Country: US (occurrence: None)
  Receive Date: 20130109
  Receipt Date: 20130109
  Transmission Date: 20140127
  Serious: Yes (Disabling)
  Sender: FDA-Public Use
  Company Number: DSA_61776_2013

PATIENT
  Sex: Female

DRUGS (1)
  1. XENAZINE 25 MG (NOT SPECIFIED) [Suspect]
     Indication: HUNTINGTON^S DISEASE
     Dosage: (DF ORAL)
     Route: 048

REACTIONS (1)
  - Blindness [None]
